FAERS Safety Report 5654147-2 (Version None)
Quarter: 2008Q1

REPORT INFORMATION
  Report Type: 
  Country: None (occurrence: None)
  Receive Date: 20080306
  Receipt Date: 20080213
  Transmission Date: 20080703
  Serious: No
  Sender: FDA-Public Use
  Company Number: US-BOEHRINGER INGELHEIM GMBH, GERMANY-2008-BP-01093BP

PATIENT
  Sex: Male
  Weight: 111 kg

DRUGS (3)
  1. MIRAPEX [Suspect]
     Indication: RESTLESS LEGS SYNDROME
  2. XANAX [Concomitant]
  3. NORCO [Concomitant]

REACTIONS (1)
  - HALLUCINATION, AUDITORY [None]
